FAERS Safety Report 6569091-6 (Version None)
Quarter: 2010Q1

REPORT INFORMATION
  Report Type: 
  Country: None (occurrence: None)
  Receive Date: 20100203
  Receipt Date: 20100124
  Transmission Date: 20100710
  Serious: Yes (Other)
  Sender: FDA-Public Use
  Company Number: US-BAXTER-2009BH011018

PATIENT
  Age: 44 Year
  Sex: Male
  Weight: 176 kg

DRUGS (5)
  1. HEPARIN SODIUM INJECTION [Suspect]
     Indication: INTRAVENOUS CATHETER MANAGEMENT
     Route: 042
     Dates: start: 20071201, end: 20080101
  2. AZATHIOPRINE [Suspect]
     Indication: DRUG USE FOR UNKNOWN INDICATION
     Route: 065
     Dates: start: 20080124
  3. LISINOPRIL [Concomitant]
     Indication: DRUG USE FOR UNKNOWN INDICATION
     Route: 065
  4. CONCERTA [Concomitant]
     Indication: DRUG USE FOR UNKNOWN INDICATION
     Route: 065
  5. OXYGEN [Concomitant]
     Indication: PULMONARY FIBROSIS
     Route: 055

REACTIONS (5)
  - HEPARIN-INDUCED THROMBOCYTOPENIA [None]
  - PURPURA [None]
  - SKIN LESION [None]
  - THROMBOCYTOPENIA [None]
  - TINEA INFECTION [None]
